FAERS Safety Report 7201060-5 (Version None)
Quarter: 2010Q4

REPORT INFORMATION
  Report Type: 
  Country: None (occurrence: None)
  Receive Date: 20101229
  Receipt Date: 20101220
  Transmission Date: 20110411
  Serious: Yes (Hospitalization)
  Sender: FDA-Public Use
  Company Number: US-BIOGENIDEC-2010BI002862

PATIENT
  Age: 48 Year
  Sex: Female
  Weight: 58 kg

DRUGS (12)
  1. AVONEX [Suspect]
     Indication: MULTIPLE SCLEROSIS
     Route: 030
     Dates: start: 20090702, end: 20101215
  2. LYRICA [Concomitant]
     Indication: FIBROMYALGIA
  3. NOVALOG [Concomitant]
     Indication: DIABETES MELLITUS
     Route: 058
     Dates: start: 20070101
  4. METFORMIN [Concomitant]
     Indication: DIABETES MELLITUS
     Dates: start: 20020101, end: 20070101
  5. KLONOPIN [Concomitant]
     Indication: RESTLESS LEGS SYNDROME
     Route: 048
  6. PRAVASTATIN [Concomitant]
     Indication: BLOOD CHOLESTEROL INCREASED
  7. ACETAMINOPHEN AND HYDROCODONE BITARTRATE [Concomitant]
     Indication: FIBROMYALGIA
     Route: 048
  8. ACETAMINOPHEN AND HYDROCODONE BITARTRATE [Concomitant]
     Indication: OSTEOARTHRITIS
     Route: 048
  9. MIRAPEX [Concomitant]
     Indication: RESTLESS LEGS SYNDROME
  10. LIDOCAINE [Concomitant]
     Indication: INTERVERTEBRAL DISC PROTRUSION
  11. VITAMIN B-12 [Concomitant]
     Indication: ANAEMIA
  12. IRON [Concomitant]
     Indication: ANAEMIA

REACTIONS (16)
  - ANXIETY [None]
  - ARTHRALGIA [None]
  - COORDINATION ABNORMAL [None]
  - DEPRESSION [None]
  - EAR PAIN [None]
  - FATIGUE [None]
  - FIBROMYALGIA [None]
  - GASTRIC ULCER [None]
  - INFLUENZA LIKE ILLNESS [None]
  - MEMORY IMPAIRMENT [None]
  - MULTIPLE SCLEROSIS [None]
  - MULTIPLE SCLEROSIS RELAPSE [None]
  - OROPHARYNGEAL PAIN [None]
  - PAIN [None]
  - PAIN IN EXTREMITY [None]
  - TREMOR [None]
